FAERS Safety Report 19214284 (Version 3)
Quarter: 2023Q1

REPORT INFORMATION
  Report Type: Spontaneous
  Country: US (occurrence: US)
  Receive Date: 20210505
  Receipt Date: 20230123
  Transmission Date: 20230418
  Serious: No
  Sender: FDA-Public Use
  Company Number: NVSC2021US100745

PATIENT
  Sex: Female

DRUGS (1)
  1. COSENTYX [Suspect]
     Active Substance: SECUKINUMAB
     Indication: Psoriatic arthropathy
     Dosage: 300 MG, QMO
     Route: 058

REACTIONS (1)
  - Drug ineffective [Not Recovered/Not Resolved]
